FAERS Safety Report 6157371-8 (Version None)
Quarter: 2009Q2

REPORT INFORMATION
  Report Type: 
  Country: None (occurrence: None)
  Receive Date: 20090416
  Receipt Date: 20090406
  Transmission Date: 20091009
  Serious: Yes (Other)
  Sender: FDA-Public Use
  Company Number: DE-PFIZER INC-2009172420

PATIENT

DRUGS (12)
  1. DIFLUCAN [Suspect]
     Indication: SUPERINFECTION FUNGAL
     Dosage: 800 MG, 3X/WEEK
     Route: 042
     Dates: start: 20090201
  2. DIFLUCAN [Suspect]
     Dosage: 100 MG, 1X/DAY
     Route: 042
     Dates: start: 20090201
  3. ANTIBIOTICS [Concomitant]
  4. MARCUMAR [Concomitant]
     Indication: ATRIAL FIBRILLATION
     Dosage: UNK
  5. ERYTHROPOIETIN [Concomitant]
     Indication: RENAL FAILURE
     Dosage: 4000 IU, WEEKLY
  6. ERYTHROPOIETIN [Concomitant]
     Indication: DIALYSIS
  7. ERYTHROPOIETIN [Concomitant]
     Indication: ANAEMIA
  8. EINSALPHA [Concomitant]
     Indication: RENAL FAILURE
     Dosage: 1 UG, WEEKLY
  9. EINSALPHA [Concomitant]
     Indication: DIALYSIS
  10. EINSALPHA [Concomitant]
     Indication: ANAEMIA
  11. BISOPROLOL [Concomitant]
     Indication: CORONARY ARTERIAL STENT INSERTION
     Dosage: 5 MG, WEEKLY
  12. BISOPROLOL [Concomitant]
     Indication: MYOCARDIAL INFARCTION

REACTIONS (3)
  - HYPERAESTHESIA [None]
  - HYPERSENSITIVITY [None]
  - PAIN OF SKIN [None]
